FAERS Safety Report 4733043-9 (Version None)
Quarter: 2005Q3

REPORT INFORMATION
  Report Type: 
  Country: None (occurrence: None)
  Receive Date: 20050801
  Receipt Date: 20050801
  Transmission Date: 20060218
  Serious: Yes (Other)
  Sender: FDA-Public Use
  Company Number: None

PATIENT
  Age: 28 Year
  Sex: Female
  Weight: 54.4316 kg

DRUGS (2)
  1. ETANERCEPT 50 MG SC BIW AMGEN [Suspect]
     Indication: PSORIASIS
     Dosage: 25 MG BIW SUBCUTANEO
     Route: 058
     Dates: start: 20040329, end: 20050730
  2. BIAXIN [Concomitant]

REACTIONS (2)
  - GRANULOMA [None]
  - MYCOBACTERIUM MARINUM INFECTION [None]
